FAERS Safety Report 8497733 (Version 3)
Quarter: 2013Q1

REPORT INFORMATION
  Report Type: Spontaneous
  Country: TR (occurrence: TR)
  Receive Date: 20120406
  Receipt Date: 20130101
  Transmission Date: 20140127
  Serious: Yes (Other)
  Sender: FDA-Public Use
  Company Number: TR-AMGEN-TURSP2012020810

PATIENT
  Age: 58 Year
  Sex: Female

DRUGS (1)
  1. ENBREL [Suspect]
     Indication: RHEUMATOID ARTHRITIS
     Dosage: 25 MG, 2X/WEEK
     Route: 058
     Dates: start: 2006, end: 201210

REACTIONS (7)
  - Pulmonary mass [Not Recovered/Not Resolved]
  - Swelling [Not Recovered/Not Resolved]
  - Deformity [Not Recovered/Not Resolved]
  - Paraplegia [Not Recovered/Not Resolved]
  - Inflammation [Not Recovered/Not Resolved]
  - Walking disability [Not Recovered/Not Resolved]
  - Drug ineffective [Recovered/Resolved]
